FAERS Safety Report 6292202-7 (Version None)
Quarter: 2009Q3

REPORT INFORMATION
  Report Type: 
  Country: None (occurrence: None)
  Receive Date: 20090731
  Receipt Date: 20090722
  Transmission Date: 20100115
  Serious: Yes (Other)
  Sender: FDA-Public Use
  Company Number: PHHY2009JP30342

PATIENT
  Age: 62 Year
  Sex: Female

DRUGS (2)
  1. TEGRETOL [Suspect]
     Indication: NEURALGIA
     Dosage: 400MG DAILY
     Dates: start: 20081201
  2. AMITRIPTYLINE HYDROCHLORIDE [Concomitant]
     Indication: NEURALGIA
     Dosage: 10MG

REACTIONS (3)
  - DIZZINESS [None]
  - DRUG INEFFECTIVE [None]
  - SPINAL CORD NEOPLASM [None]
